FAERS Safety Report 6753828-7 (Version None)
Quarter: 2010Q2

REPORT INFORMATION
  Report Type: 
  Country: None (occurrence: None)
  Receive Date: 20100603
  Receipt Date: 20100503
  Transmission Date: 20101027
  Serious: No
  Sender: FDA-Public Use
  Company Number: US-BAYER-200941815NA

PATIENT
  Age: 68 Year
  Sex: Male
  Weight: 104 kg

DRUGS (7)
  1. ULTRAVIST 300 [Suspect]
     Indication: COMPUTERISED TOMOGRAM ABDOMEN
     Dosage: TOTAL DAILY DOSE: 100 ML  UNIT DOSE: 300 ML
     Route: 042
     Dates: start: 20091117, end: 20091117
  2. GARLIC [Concomitant]
  3. HYDROCHLOROTHIAZIDE [Concomitant]
  4. ALEVE (CAPLET) [Concomitant]
  5. FISH OIL [Concomitant]
  6. MULTI-VITAMIN [Concomitant]
  7. CONTRAST MEDIA [Concomitant]
     Indication: DRUG USE FOR UNKNOWN INDICATION

REACTIONS (1)
  - THROAT IRRITATION [None]
